FAERS Safety Report 9296289 (Version 1)
Quarter: 2013Q2

REPORT INFORMATION
  Report Type: Other
  Country: CN (occurrence: CN)
  Receive Date: 20130517
  Receipt Date: 20130517
  Transmission Date: 20140414
  Serious: Yes (Other)
  Sender: FDA-Public Use
  Company Number: CN-BRISTOL-MYERS SQUIBB COMPANY-18908335

PATIENT
  Age: 66 Year
  Sex: Male

DRUGS (2)
  1. CISPLATIN [Suspect]
     Indication: ADENOCARCINOMA GASTRIC
  2. ABRAXANE [Suspect]
     Indication: ADENOCARCINOMA GASTRIC
     Dosage: 1DF:130MG/M2 ON 1 AND 8 DAY,260MG/M2 ON  1DAY,ERY 3WK.
     Route: 042

REACTIONS (3)
  - Neutropenia [Unknown]
  - Thrombocytopenia [Unknown]
  - Liver injury [Unknown]
